FAERS Safety Report 8916003 (Version 1)
Quarter: 2012Q4

REPORT INFORMATION
  Report Type: 
  Country: FR (occurrence: FR)
  Receive Date: 20121119
  Receipt Date: 20121119
  Transmission Date: 20130627
  Serious: Yes (Hospitalization)
  Sender: FDA-Public Use
  Company Number: FR-GLAXOSMITHKLINE-B0843312A

PATIENT
  Age: 81 Year
  Sex: Male

DRUGS (7)
  1. ARIXTRA [Suspect]
     Indication: THROMBOSIS
     Dosage: 7.5MG Per day
     Route: 058
     Dates: start: 20120905, end: 20120918
  2. TENORDATE [Concomitant]
     Route: 048
  3. INEXIUM [Concomitant]
     Dosage: 20MG Per day
     Route: 048
  4. PAROXETINE [Concomitant]
     Dosage: 20MG Per day
     Route: 048
  5. TRAMADOL [Concomitant]
     Route: 048
  6. TEMESTA [Concomitant]
     Dosage: 2.5MG Per day
     Route: 048
  7. NIFEDIPINE [Concomitant]

REACTIONS (1)
  - Muscle haemorrhage [Recovered/Resolved]
